FAERS Safety Report 6269205-1 (Version None)
Quarter: 2009Q3

REPORT INFORMATION
  Report Type: 
  Country: None (occurrence: None)
  Receive Date: 20090715
  Receipt Date: 20090709
  Transmission Date: 20100115
  Serious: Yes (Hospitalization, Other)
  Sender: FDA-Public Use
  Company Number: US-JNJFOC-20090702937

PATIENT
  Age: 58 Year
  Sex: Female

DRUGS (4)
  1. ULTRAM [Suspect]
     Indication: DRUG USE FOR UNKNOWN INDICATION
     Route: 065
  2. MUSCLE RELAXANT [Concomitant]
  3. ANTICONVULSANT [Concomitant]
  4. SSRI [Concomitant]

REACTIONS (3)
  - CONVULSION [None]
  - OVERDOSE [None]
  - TRANSIENT ISCHAEMIC ATTACK [None]
